FAERS Safety Report 6406639-6 (Version None)
Quarter: 2009Q4

REPORT INFORMATION
  Report Type: 
  Country: None (occurrence: None)
  Receive Date: 20091020
  Receipt Date: 20091014
  Transmission Date: 20100525
  Serious: Yes (Hospitalization)
  Sender: FDA-Public Use
  Company Number: US-RB-020285-09

PATIENT
  Age: 56 Year
  Sex: Male

DRUGS (2)
  1. SUBOXONE [Suspect]
     Dosage: DOSE 8 TO 16 MG DAILY
     Route: 060
     Dates: start: 20090901
  2. SUBOXONE [Suspect]
     Dosage: UNKNOWN DOSAGE

REACTIONS (6)
  - ASTHMA [None]
  - BRONCHITIS [None]
  - DRUG WITHDRAWAL SYNDROME [None]
  - INFLUENZA [None]
  - MUSCLE SPASMS [None]
  - PNEUMONIA [None]
